FAERS Safety Report 7628767-X (Version None)
Quarter: 2011Q3

REPORT INFORMATION
  Report Type: 
  Country: None (occurrence: None)
  Receive Date: 20110720
  Receipt Date: 20110720
  Transmission Date: 20111222
  Serious: Yes (Other)
  Sender: FDA-Public Use
  Company Number: None

PATIENT
  Age: 68 Year
  Sex: Female
  Weight: 81.6475 kg

DRUGS (2)
  1. LORAZEPAM [Suspect]
     Indication: SLEEP DISORDER
     Dosage: .5 MG
  2. LORAZEPAM [Suspect]
     Indication: SLEEP DISORDER
     Dosage: .5 MG  (5 DAYS EARLY TO MID JUNE 2011)

REACTIONS (3)
  - PRODUCT QUALITY ISSUE [None]
  - PRODUCT SUBSTITUTION ISSUE [None]
  - DRUG EFFECT DECREASED [None]
